FAERS Safety Report 8455529-6 (Version None)
Quarter: 2012Q2

REPORT INFORMATION
  Report Type: 
  Country: None (occurrence: None)
  Receive Date: 20120621
  Receipt Date: 20120614
  Transmission Date: 20120825
  Serious: Yes (Hospitalization, Other)
  Sender: FDA-Public Use
  Company Number: FR-PFIZER INC-2012143065

PATIENT
  Age: 38 Year
  Sex: Male

DRUGS (4)
  1. FOLINIC ACID [Concomitant]
     Indication: ADENOCARCINOMA PANCREAS
  2. OXALIPLATIN [Suspect]
     Indication: ADENOCARCINOMA PANCREAS
     Dosage: 1 DF, 2X/WEEK, ONE COURSE EVERY 15 DAYS
     Route: 042
     Dates: start: 20120223
  3. IRINOTECAN HCL [Suspect]
     Indication: ADENOCARCINOMA PANCREAS
     Dosage: UNK
     Route: 042
     Dates: start: 20120223, end: 20120405
  4. FLUOROURACIL [Suspect]
     Indication: ADENOCARCINOMA PANCREAS
     Dosage: 1 DF, 2X/WEEK, ONE COURSE EVERY 15 DAYS
     Route: 042
     Dates: start: 20120223

REACTIONS (5)
  - OESOPHAGITIS [None]
  - WEIGHT DECREASED [None]
  - DYSPHAGIA [None]
  - ORAL FUNGAL INFECTION [None]
  - STOMATITIS [None]
